FAERS Safety Report 11871109 (Version 8)
Quarter: 2018Q4

REPORT INFORMATION
  Report Type: Report from Study
  Country: JP (occurrence: JP)
  Receive Date: 20151228
  Receipt Date: 20181130
  Transmission Date: 20190204
  Serious: Yes (Other)
  Sender: FDA-Public Use
  Company Number: JP-VIIV HEALTHCARE LIMITED-JP2015JPN180189

PATIENT
  Age: 4 Decade
  Sex: Male

DRUGS (24)
  1. TRUVADA [Suspect]
     Active Substance: EMTRICITABINE\TENOFOVIR DISOPROXIL FUMARATE
     Indication: HIV INFECTION
     Dosage: 1 DF, 1D
     Route: 048
     Dates: start: 20060905, end: 20170307
  2. NORVIR [Suspect]
     Active Substance: RITONAVIR
     Indication: HIV INFECTION
     Dosage: 200 MG, 1D
     Dates: start: 20110726
  3. ISENTRESS [Concomitant]
     Active Substance: RALTEGRAVIR POTASSIUM
     Indication: HIV INFECTION
     Dosage: 800 MG, UNK
     Dates: end: 20140616
  4. DESCOVY [Concomitant]
     Active Substance: EMTRICITABINE\TENOFOVIR ALAFENAMIDE FUMARATE
     Indication: HIV INFECTION
     Dosage: UNK
     Dates: start: 20170308
  5. POSTERISAN FORTE OINTMENT (E. COLI + HYDROCORTISONE) [Concomitant]
     Indication: HAEMORRHOIDAL HAEMORRHAGE
  6. BORRAZA-G OINTMENT [Concomitant]
     Indication: HAEMORRHOIDS
     Dosage: PROPER QUANTITY, QD
     Dates: start: 20140401
  7. CROSS EIGHT M [Concomitant]
     Active Substance: ANTIHEMOPHILIC FACTOR HUMAN
     Indication: HAEMOPHILIA
     Dosage: LESS THAN 1000 UT, QD
     Dates: start: 20140402
  8. CROSS EIGHT M [Concomitant]
     Active Substance: ANTIHEMOPHILIC FACTOR HUMAN
     Dosage: 2000 IU, 3 TIMES A WEEK
     Dates: start: 20151026, end: 20151208
  9. CROSS EIGHT M [Concomitant]
     Active Substance: ANTIHEMOPHILIC FACTOR HUMAN
     Dosage: 2000 IU, 3 TIMES A WEEK
     Dates: start: 20151216
  10. NERIPROCT OINTMENT [Concomitant]
     Indication: HAEMORRHOIDS
     Dosage: PROPER QUANTITY, BID
     Dates: start: 20140602, end: 20151213
  11. HELMITIN S [Concomitant]
     Indication: HAEMORRHOIDAL HAEMORRHAGE
  12. POSTERISAN FORTE OINTMENT (E. COLI + HYDROCORTISONE) [Concomitant]
     Indication: HAEMORRHOIDS
     Dosage: UNK
     Dates: start: 20170411
  13. CROSS EIGHT M [Concomitant]
     Active Substance: ANTIHEMOPHILIC FACTOR HUMAN
     Dosage: 1000 IU, QD
     Dates: end: 20150406
  14. CROSS EIGHT M [Concomitant]
     Active Substance: ANTIHEMOPHILIC FACTOR HUMAN
     Dosage: 2000 IU, 3 TIMES A WEEK
     Dates: start: 20150407, end: 20151011
  15. DOLUTEGRAVIR [Suspect]
     Active Substance: DOLUTEGRAVIR
     Indication: HIV INFECTION
     Dosage: 50 MG, 1D
     Route: 048
     Dates: start: 20140617
  16. NERIPROCT OINTMENT [Concomitant]
     Dosage: PROPER QUANTITY, 1 TO 3 TIMES A DAY
     Dates: start: 20151214, end: 20170410
  17. BIOFERMIN [Concomitant]
     Active Substance: BACILLUS SUBTILIS\LACTOBACILLUS ACIDOPHILUS\STREPTOCOCCUS FAECAIS
     Indication: ABDOMINAL DISTENSION
     Dosage: 1 DF, TID
     Dates: start: 20140402
  18. HARVONI [Concomitant]
     Active Substance: LEDIPASVIR\SOFOSBUVIR
     Indication: CHRONIC HEPATITIS C
     Dosage: 1 DF, QD
     Dates: start: 20160412, end: 20160703
  19. HELMITIN S [Concomitant]
     Indication: HAEMORRHOIDS
     Dosage: UNK
     Dates: start: 20170411
  20. CROSS EIGHT M [Concomitant]
     Active Substance: ANTIHEMOPHILIC FACTOR HUMAN
     Dosage: 2000 IU, QD
     Dates: start: 20151019, end: 20151025
  21. MAGLAX [Concomitant]
     Active Substance: MAGNESIUM OXIDE
     Indication: HAEMORRHOIDS
     Dosage: 330 MG, TID
     Dates: start: 20151210, end: 20160202
  22. PREZISTA [Suspect]
     Active Substance: DARUNAVIR ETHANOLATE
     Indication: HIV INFECTION
     Dosage: 600 MG, BID
     Route: 048
     Dates: start: 20060905
  23. CROSS EIGHT M [Concomitant]
     Active Substance: ANTIHEMOPHILIC FACTOR HUMAN
     Dosage: 3000 IU, QD
     Dates: start: 20151012, end: 20151018
  24. CROSS EIGHT M [Concomitant]
     Active Substance: ANTIHEMOPHILIC FACTOR HUMAN
     Dosage: 2000 IU, QD
     Dates: start: 20151209, end: 20151215

REACTIONS (3)
  - Tachycardia [Recovered/Resolved]
  - Oropharyngeal discomfort [Recovering/Resolving]
  - Dyslipidaemia [Not Recovered/Not Resolved]

NARRATIVE: CASE EVENT DATE: 20141224
